FAERS Safety Report 7299476-4 (Version None)
Quarter: 2011Q1

REPORT INFORMATION
  Report Type: 
  Country: None (occurrence: None)
  Receive Date: 20110217
  Receipt Date: 20110210
  Transmission Date: 20110831
  Serious: Yes (Other)
  Sender: FDA-Public Use
  Company Number: ES-JNJFOC-20100304091

PATIENT
  Sex: Female
  Weight: 62 kg

DRUGS (5)
  1. METHYLPREDNISOLONE [Suspect]
     Indication: PSORIASIS
  2. STELARA [Suspect]
     Indication: PUSTULAR PSORIASIS
     Route: 058
  3. CYCLOPHOSPHAMIDE [Suspect]
     Indication: PSORIASIS
     Route: 048
  4. CYCLOPHOSPHAMIDE [Suspect]
     Route: 048
  5. POLARAMINE [Suspect]
     Indication: PSORIASIS
     Route: 061

REACTIONS (6)
  - GESTATIONAL DIABETES [None]
  - DRUG EXPOSURE DURING PREGNANCY [None]
  - PSORIASIS [None]
  - HYPERTRIGLYCERIDAEMIA [None]
  - UMBILICAL CORD ABNORMALITY [None]
  - PREMATURE LABOUR [None]
